FAERS Safety Report 7527795-2 (Version None)
Quarter: 2011Q2

REPORT INFORMATION
  Report Type: 
  Country: None (occurrence: None)
  Receive Date: 20110607
  Receipt Date: 20110603
  Transmission Date: 20111010
  Serious: Yes (Other)
  Sender: FDA-Public Use
  Company Number: US-PFIZER INC-2011121545

PATIENT
  Sex: Male
  Weight: 145 kg

DRUGS (12)
  1. AMARYL [Concomitant]
     Indication: DIABETES MELLITUS
     Dosage: 4 MG, DAILY
     Route: 048
  2. SPIRONOLACTONE [Concomitant]
     Dosage: 25 MG, DAILY
  3. ALTACE [Concomitant]
     Dosage: 1.25 MG, DAILY
  4. VYTORIN [Concomitant]
     Dosage: 10/40 MG, DAILY
  5. BYETTA [Concomitant]
     Indication: DIABETES MELLITUS
     Dosage: 10 IU, DAILY
  6. METOPROLOL [Concomitant]
     Dosage: 25 MG, DAILY
  7. GLUCOPHAGE [Concomitant]
     Indication: DIABETES MELLITUS
     Dosage: 1000 MG, DAILY
  8. LASIX [Concomitant]
     Dosage: 40 MG, DAILY
  9. EPHEDRINE [Concomitant]
     Dosage: 325 MG, DAILY
  10. POTASSIUM [Concomitant]
     Dosage: 20 MEQ, 2X/DAY
  11. INSULIN [Concomitant]
     Indication: DIABETES MELLITUS
     Dosage: 90 UNITS IN MORNING AND 56 UNITS AT NIGHT
  12. ZOLOFT [Suspect]
     Indication: DEPRESSION
     Dosage: 100 MG, 2X/DAY
     Route: 048
     Dates: end: 20110529

REACTIONS (1)
  - CARDIAC OPERATION [None]
